FAERS Safety Report 12934270 (Version 2)
Quarter: 2016Q4

REPORT INFORMATION
  Report Type: Spontaneous
  Country: US (occurrence: US)
  Receive Date: 20161111
  Receipt Date: 20161221
  Transmission Date: 20170207
  Serious: Yes (Hospitalization, Other)
  Sender: FDA-Public Use
  Company Number: US-SAOL THERAPEUTICS-2016SAO00999

PATIENT
  Age: 66 Year
  Sex: Female

DRUGS (2)
  1. LIORESAL [Suspect]
     Active Substance: BACLOFEN
     Indication: MULTIPLE SCLEROSIS
  2. LIORESAL [Suspect]
     Active Substance: BACLOFEN
     Indication: MUSCLE SPASTICITY
     Dosage: 151.13 ?G, \DAY
     Route: 037

REACTIONS (10)
  - Muscle spasms [Unknown]
  - Blood pressure increased [Unknown]
  - Fall [Unknown]
  - Device malfunction [Unknown]
  - Therapy non-responder [Unknown]
  - Musculoskeletal stiffness [Unknown]
  - Drug dose omission [Unknown]
  - Decubitus ulcer [Unknown]
  - Muscle rigidity [Unknown]
  - Mental status changes [Unknown]

NARRATIVE: CASE EVENT DATE: 201603
